FAERS Safety Report 8206066-5 (Version None)
Quarter: 2012Q1

REPORT INFORMATION
  Report Type: 
  Country: None (occurrence: None)
  Receive Date: 20120313
  Receipt Date: 20120301
  Transmission Date: 20120608
  Serious: Yes (Other)
  Sender: FDA-Public Use
  Company Number: JP-ELI_LILLY_AND_COMPANY-JP201108007454

PATIENT
  Age: 75 Year
  Sex: Female

DRUGS (1)
  1. FORTEO [Suspect]
     Indication: OSTEOPOROSIS
     Dosage: UNK
     Route: 058
     Dates: start: 20110624

REACTIONS (6)
  - INSOMNIA [None]
  - NAUSEA [None]
  - ARTHRALGIA [None]
  - ACUTE MYOCARDIAL INFARCTION [None]
  - FRACTURE [None]
  - MUSCLE SPASMS [None]
